FAERS Safety Report 15616850 (Version 1)
Quarter: 2018Q4

REPORT INFORMATION
  Report Type: Spontaneous
  Country: US (occurrence: US)
  Receive Date: 20181109
  Receipt Date: 20181109
  Transmission Date: 20190205
  Serious: Yes (Other)
  Sender: FDA-Public Use
  Company Number: None

PATIENT
  Age: 60 Year
  Sex: Female
  Weight: 85.5 kg

DRUGS (5)
  1. PREDNISONE. [Suspect]
     Active Substance: PREDNISONE
  2. TRIAMCINOLONE 1% [Suspect]
     Active Substance: TRIAMCINOLONE
     Indication: RASH
     Dosage: ?          OTHER STRENGTH:UNDURE;QUANTITY:30 OUNCE(S);?
     Route: 061
     Dates: start: 20180516, end: 20180813
  3. TRIAMCINOLONE 1% [Suspect]
     Active Substance: TRIAMCINOLONE
     Indication: SUNBURN
     Dosage: ?          OTHER STRENGTH:UNDURE;QUANTITY:30 OUNCE(S);?
     Route: 061
     Dates: start: 20180516, end: 20180813
  4. VITAMIN D [Concomitant]
     Active Substance: CHOLECALCIFEROL
  5. VITAMIN C [Concomitant]
     Active Substance: ASCORBIC ACID

REACTIONS (1)
  - Steroid withdrawal syndrome [None]

NARRATIVE: CASE EVENT DATE: 20181008
